FAERS Safety Report 16323630 (Version 1)
Quarter: 2019Q2

REPORT INFORMATION
  Report Type: Report from Study
  Country: CA (occurrence: CA)
  Receive Date: 20190517
  Receipt Date: 20190517
  Transmission Date: 20190711
  Serious: Yes (Other)
  Sender: FDA-Public Use
  Company Number: CA-ROCHE-2317247

PATIENT
  Age: 46 Year
  Sex: Female

DRUGS (1)
  1. OCREVUS [Suspect]
     Active Substance: OCRELIZUMAB
     Indication: PRIMARY PROGRESSIVE MULTIPLE SCLEROSIS
     Dosage: 300 MG AT DAY 0 AND 14, THEN 600 MG EVERY 6 MONTH
     Route: 042
     Dates: start: 20181026

REACTIONS (4)
  - Cough [Recovering/Resolving]
  - Animal scratch [Recovering/Resolving]
  - Wound [Recovering/Resolving]
  - Wound infection [Recovering/Resolving]

NARRATIVE: CASE EVENT DATE: 20190503
